FAERS Safety Report 4707606-0 (Version None)
Quarter: 2005Q3

REPORT INFORMATION
  Report Type: 
  Country: None (occurrence: None)
  Receive Date: 20050705
  Receipt Date: 20050615
  Transmission Date: 20060218
  Serious: Yes (Hospitalization)
  Sender: FDA-Public Use
  Company Number: B0381164A

PATIENT
  Age: 5 Year
  Sex: Male

DRUGS (1)
  1. ALBENZA [Suspect]

REACTIONS (7)
  - ADAMS-STOKES SYNDROME [None]
  - FATIGUE [None]
  - HEART RATE IRREGULAR [None]
  - OVERDOSE [None]
  - SINUS ARRHYTHMIA [None]
  - SOPOR [None]
  - VIRAL MYOCARDITIS [None]
